FAERS Safety Report 6287590-1 (Version None)
Quarter: 2009Q3

REPORT INFORMATION
  Report Type: 
  Country: None (occurrence: None)
  Receive Date: 20090727
  Receipt Date: 20090712
  Transmission Date: 20100115
  Serious: Yes (Other)
  Sender: FDA-Public Use
  Company Number: 001258

PATIENT
  Sex: Female
  Weight: 50 kg

DRUGS (8)
  1. ISOSORBIDE DINITRATE [Suspect]
     Dosage: 120 MG QD ORAL
     Route: 048
  2. CARVEDILOL [Suspect]
     Dosage: 75 MG QD ORAL
     Route: 048
  3. LORAZEPAM [Suspect]
     Dosage: 3 TABLETS
  4. MELPERON (MELPERON 25) [Suspect]
     Dosage: 112.5 MG QD, 4.5 TABLETS ORAL
     Route: 048
  5. NORTRILEN (NORTRILEN) (NOT SPECIFIED) [Suspect]
     Dosage: 300 MG QD ORAL
     Route: 048
  6. ZOPICLON (ZOPICLON) (NOT SPECIFIED) [Suspect]
     Dosage: 97.5 MG QD, 13 TABLETS ORAL
     Route: 048
  7. ZYPREXA [Suspect]
     Dosage: 40 MG QD ORAL
     Route: 048
  8. DIGITOXIN TAB [Suspect]
     Dosage: 0.21 MG QD, 3 TABLETS ORAL
     Route: 048

REACTIONS (5)
  - ELECTROCARDIOGRAM ST SEGMENT DEPRESSION [None]
  - INCORRECT DOSE ADMINISTERED [None]
  - RESPIRATORY DEPRESSION [None]
  - SOMNOLENCE [None]
  - SUICIDE ATTEMPT [None]
